FAERS Safety Report 6354941-9 (Version None)
Quarter: 2009Q3

REPORT INFORMATION
  Report Type: 
  Country: None (occurrence: None)
  Receive Date: 20090914
  Receipt Date: 20080304
  Transmission Date: 20100115
  Serious: Yes (Death)
  Sender: FDA-Public Use
  Company Number: A0707824A

PATIENT
  Age: 79 Year
  Sex: Female

DRUGS (2)
  1. ADVAIR HFA [Suspect]
     Indication: DRUG USE FOR UNKNOWN INDICATION
     Dosage: 1PUFF TWICE PER DAY
     Route: 055
     Dates: start: 20070801, end: 20080101
  2. UNKNOWN [Concomitant]

REACTIONS (2)
  - DEATH [None]
  - PRODUCT QUALITY ISSUE [None]
